FAERS Safety Report 4378044-8 (Version None)
Quarter: 2004Q2

REPORT INFORMATION
  Report Type: 
  Country: None (occurrence: None)
  Receive Date: 20040608
  Receipt Date: 20040601
  Transmission Date: 20050107
  Serious: Yes (Hospitalization)
  Sender: FDA-Public Use
  Company Number: 04P-167-0262518-00

PATIENT
  Age: 41 Year
  Sex: Female

DRUGS (8)
  1. HUMIRA 40 MG/ 0.8 ML PRE-FILLED SYRINGE (HUMIRA) (ADALIMUMAB) [Suspect]
     Indication: RELAPSING POLYCHONDRITIS
     Dosage: 40 MG, 1 IN 2 WK, SUBCUTANEOUS
     Route: 058
     Dates: start: 20040101
  2. METHOTREXATE [Concomitant]
  3. DEFLAZACORT [Concomitant]
  4. WARFARIN SODIUM [Concomitant]
  5. METOPROLOL TARTRATE [Concomitant]
  6. FRUMIL [Concomitant]
  7. CALCIUM CARBONATE [Concomitant]
  8. CARBAMAZEPINE [Concomitant]

REACTIONS (4)
  - CIRCULATORY COLLAPSE [None]
  - EPILEPSY [None]
  - GRAND MAL CONVULSION [None]
  - SPINAL FRACTURE [None]
